FAERS Safety Report 4560316-5 (Version None)
Quarter: 2005Q1

REPORT INFORMATION
  Report Type: 
  Country: None (occurrence: None)
  Receive Date: 20050120
  Receipt Date: 20050120
  Transmission Date: 20050727
  Serious: No
  Sender: FDA-Public Use
  Company Number: None

PATIENT
  Age: 80 Year
  Sex: Male
  Weight: 66 kg

DRUGS (1)
  1. VITAMIN E [Suspect]
     Indication: PROPHYLAXIS
     Dosage: 400 UNITS DAILY PO
     Route: 048
     Dates: start: 20041201, end: 20041227

REACTIONS (1)
  - INTERNATIONAL NORMALISED RATIO INCREASED [None]
